FAERS Safety Report 5442003-4 (Version None)
Quarter: 2007Q3

REPORT INFORMATION
  Report Type: 
  Country: None (occurrence: None)
  Receive Date: 20070904
  Receipt Date: 20070828
  Transmission Date: 20080115
  Serious: Yes (Hospitalization)
  Sender: FDA-Public Use
  Company Number: D0054406A

PATIENT
  Age: 28 Year
  Sex: Male
  Weight: 70 kg

DRUGS (5)
  1. AUGMENTIN '125' [Suspect]
     Dosage: 625MG SEE DOSAGE TEXT
     Route: 048
     Dates: start: 20070827, end: 20070827
  2. FERRO SANOL [Suspect]
     Dosage: 10TAB PER DAY
     Route: 048
     Dates: start: 20070827, end: 20070827
  3. IBUPROFEN [Suspect]
     Dosage: 400MG SEE DOSAGE TEXT
     Route: 048
     Dates: start: 20070827, end: 20070827
  4. PENICILLIN VK [Suspect]
     Dosage: 1200000IU SEE DOSAGE TEXT
     Route: 048
     Dates: start: 20070827, end: 20070827
  5. METHERGINE [Suspect]
     Dosage: .125MG SEE DOSAGE TEXT
     Route: 048
     Dates: start: 20070827, end: 20070827

REACTIONS (4)
  - AGITATION [None]
  - INTENTIONAL OVERDOSE [None]
  - NAUSEA [None]
  - SUICIDE ATTEMPT [None]
